FAERS Safety Report 11443091 (Version 3)
Quarter: 2015Q4

REPORT INFORMATION
  Report Type: Spontaneous
  Country: US (occurrence: US)
  Receive Date: 20150901
  Receipt Date: 20151113
  Transmission Date: 20160304
  Serious: Yes (Hospitalization)
  Sender: FDA-Public Use
  Company Number: US-PFIZER INC-2015287127

PATIENT
  Age: 56 Year
  Sex: Female

DRUGS (1)
  1. AROMASIN [Suspect]
     Active Substance: EXEMESTANE
     Indication: BREAST CANCER
     Dosage: UNK, 1X/DAY
     Dates: start: 201310

REACTIONS (4)
  - Malaise [Recovered/Resolved]
  - Chest discomfort [Unknown]
  - Drug dose omission [Recovered/Resolved]
  - Breast discomfort [Unknown]

NARRATIVE: CASE EVENT DATE: 201310
